FAERS Safety Report 7005376-7 (Version None)
Quarter: 2010Q3

REPORT INFORMATION
  Report Type: 
  Country: None (occurrence: None)
  Receive Date: 20100920
  Receipt Date: 20100920
  Transmission Date: 20110219
  Serious: Yes (Life-Threatening, Other)
  Sender: FDA-Public Use
  Company Number: None

PATIENT
  Age: 50 Year
  Sex: Male
  Weight: 86.1834 kg

DRUGS (1)
  1. CIPROFLOXACIN HCL [Suspect]
     Indication: URINARY TRACT INFECTION
     Dosage: 1 PILL 2 TIMES/DAY PO
     Route: 048
     Dates: start: 20100612, end: 20100614

REACTIONS (19)
  - ABDOMINAL PAIN [None]
  - ARTHRALGIA [None]
  - BODY TEMPERATURE DECREASED [None]
  - DIZZINESS [None]
  - FEELING ABNORMAL [None]
  - HYPOAESTHESIA [None]
  - MUSCLE TWITCHING [None]
  - MUSCULAR WEAKNESS [None]
  - MUSCULOSKELETAL CHEST PAIN [None]
  - NIGHT SWEATS [None]
  - OEDEMA PERIPHERAL [None]
  - PAIN [None]
  - PAIN IN EXTREMITY [None]
  - PAIN IN JAW [None]
  - PERIPHERAL COLDNESS [None]
  - TENDON PAIN [None]
  - TOOTHACHE [None]
  - TREMOR [None]
  - VISION BLURRED [None]
